FAERS Safety Report 8783997 (Version 5)
Quarter: 2017Q4

REPORT INFORMATION
  Report Type: Spontaneous
  Country: US (occurrence: US)
  Receive Date: 20120913
  Receipt Date: 20171206
  Transmission Date: 20180321
  Serious: Yes (Hospitalization, Other)
  Sender: FDA-Public Use
  Company Number: US-ASTRAZENECA-2012SE69192

PATIENT
  Age: 68 Year
  Sex: Male
  Weight: 78.9 kg

DRUGS (2)
  1. TUDORZA PRESSAIR [Suspect]
     Active Substance: ACLIDINIUM BROMIDE
     Route: 055
  2. SYMBICORT [Suspect]
     Active Substance: BUDESONIDE\FORMOTEROL FUMARATE DIHYDRATE
     Indication: CHRONIC OBSTRUCTIVE PULMONARY DISEASE
     Dosage: 160/4.5 UG, 2 PUFFS TWICE DAILY
     Route: 055

REACTIONS (6)
  - Cardiac disorder [Unknown]
  - Coronary artery disease [Unknown]
  - Prostate cancer recurrent [Unknown]
  - Oxygen saturation decreased [Unknown]
  - Drug dose omission [Unknown]
  - Dementia [Not Recovered/Not Resolved]
